FAERS Safety Report 25742889 (Version 1)
Quarter: 2025Q3

REPORT INFORMATION
  Report Type: Spontaneous
  Country: EU (occurrence: EU)
  Receive Date: 20250830
  Receipt Date: 20250830
  Transmission Date: 20251020
  Serious: Yes (Hospitalization, Other)
  Sender: CELLTRION
  Company Number: EU-AMGEN-ROUSP2025157706

PATIENT

DRUGS (3)
  1. BEVACIZUMAB [Suspect]
     Active Substance: BEVACIZUMAB
     Indication: Rectal adenocarcinoma
     Route: 065
  2. BEVACIZUMAB [Suspect]
     Active Substance: BEVACIZUMAB
     Indication: Metastases to liver
  3. CAPECITABINE\OXALIPLATIN [Concomitant]
     Active Substance: CAPECITABINE\OXALIPLATIN

REACTIONS (6)
  - Incisional hernia [Unknown]
  - Coagulopathy [Unknown]
  - Stoma prolapse [Recovered/Resolved]
  - Intestinal infarction [Unknown]
  - Strangulated incisional hernia [Unknown]
  - Intentional product use issue [Unknown]
